FAERS Safety Report 17990961 (Version 1)
Quarter: 2020Q3

REPORT INFORMATION
  Report Type: Spontaneous
  Country: IT (occurrence: IT)
  Receive Date: 20200707
  Receipt Date: 20200707
  Transmission Date: 20201103
  Serious: Yes (Hospitalization)
  Sender: FDA-Public Use
  Company Number: IT-ASTRAZENECA-2020SE82812

PATIENT
  Age: 79 Year
  Sex: Female

DRUGS (11)
  1. LUVION [Concomitant]
     Route: 065
  2. QUETIAPINE. [Suspect]
     Active Substance: QUETIAPINE
     Route: 048
  3. LASIX [Concomitant]
     Active Substance: FUROSEMIDE
     Route: 065
  4. RIVASTIGMINE. [Suspect]
     Active Substance: RIVASTIGMINE
     Route: 065
  5. NICETILE [Concomitant]
     Active Substance: LEVACECARNINE HYDROCHLORIDE
     Route: 065
  6. TRITTICO [Suspect]
     Active Substance: TRAZODONE HYDROCHLORIDE
     Route: 065
  7. PANTORC [Concomitant]
     Active Substance: PANTOPRAZOLE SODIUM
     Route: 065
  8. BISOPROLOL FUMARATE. [Concomitant]
     Active Substance: BISOPROLOL FUMARATE
     Route: 065
  9. RIVOTRIL [Suspect]
     Active Substance: CLONAZEPAM
     Route: 065
  10. LANOXIN [Concomitant]
     Active Substance: DIGOXIN
     Route: 065
  11. ELIQUIS [Concomitant]
     Active Substance: APIXABAN
     Route: 065

REACTIONS (3)
  - Bradycardia [Recovering/Resolving]
  - Sopor [Recovering/Resolving]
  - Poisoning [Recovering/Resolving]

NARRATIVE: CASE EVENT DATE: 20200306
